FAERS Safety Report 24760903 (Version 1)
Quarter: 2024Q4

REPORT INFORMATION
  Report Type: Spontaneous
  Country: CN (occurrence: CN)
  Receive Date: 20241220
  Receipt Date: 20241220
  Transmission Date: 20250115
  Serious: Yes (Other)
  Sender: BAYER HEALTHCARE PHARMACEUTICALS INC.
  Company Number: CN-BAYER-2024A180537

PATIENT

DRUGS (2)
  1. KERENDIA [Suspect]
     Active Substance: FINERENONE
     Dosage: 1 DF, QD
     Route: 048
  2. DORZAGLIATIN [Concomitant]
     Active Substance: DORZAGLIATIN
     Dosage: 1 DF, QD. EVERY MORNING BEFORE BREAKFAST
     Route: 048

REACTIONS (1)
  - Aspartate aminotransferase increased [None]
